FAERS Safety Report 4929309-X (Version None)
Quarter: 2006Q1

REPORT INFORMATION
  Report Type: 
  Country: None (occurrence: None)
  Receive Date: 20060301
  Receipt Date: 20060217
  Transmission Date: 20060701
  Serious: Yes (Disabling)
  Sender: FDA-Public Use
  Company Number: DE-BRISTOL-MYERS SQUIBB COMPANY-13293717

PATIENT
  Age: 43 Year
  Sex: Female

DRUGS (1)
  1. ABILIFY [Suspect]
     Indication: DELUSIONAL DISORDER, PERSECUTORY TYPE
     Route: 048
     Dates: start: 20041101, end: 20060201

REACTIONS (2)
  - ANHEDONIA [None]
  - DEPRESSION [None]
